FAERS Safety Report 9689837 (Version 1)
Quarter: 2013Q4

REPORT INFORMATION
  Report Type: Spontaneous
  Country: MX (occurrence: MX)
  Receive Date: 20131115
  Receipt Date: 20131115
  Transmission Date: 20140711
  Serious: Yes (Other)
  Sender: FDA-Public Use
  Company Number: MX-JNJFOC-20131105061

PATIENT
  Sex: Female
  Weight: 70 kg

DRUGS (13)
  1. PARACETAMOL [Suspect]
     Route: 048
  2. PARACETAMOL [Suspect]
     Indication: ARTHRALGIA
     Route: 048
  3. AMLODIPINE [Suspect]
     Indication: BLOOD PRESSURE ABNORMAL
     Route: 048
     Dates: start: 201212
  4. OTHER DRUGS (UNSPECIFIED) [Concomitant]
     Indication: ARTHRALGIA
     Route: 048
  5. DICLOFENAC [Concomitant]
     Indication: ARTHRALGIA
     Route: 048
     Dates: start: 1958, end: 2011
  6. NAPROXEN [Concomitant]
     Indication: ARTHRALGIA
     Route: 048
     Dates: start: 1958, end: 2011
  7. ASPIRIN [Concomitant]
     Indication: ARTHRALGIA
     Route: 048
  8. MICARDIS PLUS [Concomitant]
     Indication: BLOOD PRESSURE
     Route: 048
     Dates: start: 201212
  9. PANTOPRAZOLE [Concomitant]
     Indication: GASTRIC DISORDER
     Route: 048
     Dates: start: 201212
  10. LEVOTHYROXINE SODIUM [Concomitant]
     Indication: HYPOTHYROIDISM
     Dosage: 0.5 PER DAY
     Route: 048
     Dates: start: 201212
  11. LYRICA [Concomitant]
     Indication: ARTHRALGIA
     Route: 048
     Dates: start: 201212
  12. LYRICA [Concomitant]
     Indication: NEURALGIA
     Route: 048
     Dates: start: 201212
  13. METFORMIN [Concomitant]
     Indication: BLOOD GLUCOSE ABNORMAL
     Route: 065

REACTIONS (2)
  - Diabetes mellitus [Not Recovered/Not Resolved]
  - Drug ineffective [Unknown]
